FAERS Safety Report 22753799 (Version 4)
Quarter: 2025Q3

REPORT INFORMATION
  Report Type: Spontaneous
  Country: EU (occurrence: EU)
  Receive Date: 20230726
  Receipt Date: 20250829
  Transmission Date: 20251020
  Serious: Yes (Life-Threatening, Hospitalization, Other)
  Sender: CELLTRION
  Company Number: EU-CELLTRION INC.-2023PT013666

PATIENT

DRUGS (1)
  1. RITUXIMAB [Suspect]
     Active Substance: RITUXIMAB
     Indication: Follicular lymphoma
     Route: 065
     Dates: end: 202112

REACTIONS (7)
  - COVID-19 pneumonia [Unknown]
  - Post-acute COVID-19 syndrome [Recovered/Resolved]
  - COVID-19 [Unknown]
  - Pneumonia [Unknown]
  - Immunosuppression [Unknown]
  - Superinfection bacterial [Recovered/Resolved]
  - Off label use [Unknown]
